FAERS Safety Report 7492304-3 (Version None)
Quarter: 2011Q2

REPORT INFORMATION
  Report Type: 
  Country: None (occurrence: None)
  Receive Date: 20110519
  Receipt Date: 20110512
  Transmission Date: 20111010
  Serious: Yes (Hospitalization)
  Sender: FDA-Public Use
  Company Number: US-SANOFI-AVENTIS-2011SA030035

PATIENT
  Age: 65 Year
  Sex: Male

DRUGS (4)
  1. LANTUS [Suspect]
     Indication: DIABETES MELLITUS
     Dosage: DOSE:10 UNIT(S)
     Route: 058
  2. APIDRA [Suspect]
     Indication: DIABETES MELLITUS
     Route: 058
  3. OPTICLICK [Suspect]
     Indication: DIABETES MELLITUS
  4. OPTICLICK [Suspect]

REACTIONS (1)
  - SEPSIS [None]
